FAERS Safety Report 19233229 (Version 1)
Quarter: 2021Q2

REPORT INFORMATION
  Report Type: Report from Study
  Country: BR (occurrence: BR)
  Receive Date: 20210507
  Receipt Date: 20210507
  Transmission Date: 20210717
  Serious: Yes (Hospitalization, Other)
  Sender: FDA-Public Use
  Company Number: NVSC2020BR007451

PATIENT
  Age: 48 Year
  Sex: Female

DRUGS (3)
  1. COSENTYX [Suspect]
     Active Substance: SECUKINUMAB
     Indication: ANKYLOSING SPONDYLITIS
     Dosage: UNK
     Route: 065
  2. COSENTYX [Suspect]
     Active Substance: SECUKINUMAB
     Dosage: UNK
     Route: 065
     Dates: start: 20191222
  3. COSENTYX [Suspect]
     Active Substance: SECUKINUMAB
     Dosage: UNK
     Route: 065
     Dates: start: 20210424

REACTIONS (15)
  - Fatigue [Unknown]
  - Fatigue [Recovered/Resolved]
  - Skin lesion [Recovered/Resolved]
  - COVID-19 [Recovering/Resolving]
  - Somnolence [Recovered/Resolved]
  - Herpes zoster [Recovered/Resolved]
  - Chest pain [Recovered/Resolved]
  - Sensory disturbance [Recovered/Resolved]
  - Pain [Recovered/Resolved]
  - Mass [Recovered/Resolved]
  - Pruritus [Recovered/Resolved]
  - Lung disorder [Unknown]
  - Decreased immune responsiveness [Recovered/Resolved]
  - Asthenia [Recovered/Resolved]
  - Dizziness [Recovered/Resolved]

NARRATIVE: CASE EVENT DATE: 201911
